FAERS Safety Report 6544975-3 (Version None)
Quarter: 2010Q1

REPORT INFORMATION
  Report Type: 
  Country: None (occurrence: None)
  Receive Date: 20100121
  Receipt Date: 20091202
  Transmission Date: 20100710
  Serious: Yes (Hospitalization)
  Sender: FDA-Public Use
  Company Number: A0690865A

PATIENT
  Age: 41 Year
  Sex: Male
  Weight: 86.4 kg

DRUGS (2)
  1. AVANDIA [Suspect]
     Dosage: 2MG PER DAY
     Route: 048
     Dates: start: 20030101, end: 20070609
  2. AVANDAMET [Suspect]
     Route: 048

REACTIONS (6)
  - ATRIAL FIBRILLATION [None]
  - DYSPNOEA [None]
  - INJURY [None]
  - MYOCARDIAL INFARCTION [None]
  - NAUSEA [None]
  - PAIN [None]
